FAERS Safety Report 15929841 (Version 1)
Quarter: 2019Q1

REPORT INFORMATION
  Report Type: Report from Study
  Country: CN (occurrence: CN)
  Receive Date: 20190206
  Receipt Date: 20190206
  Transmission Date: 20190417
  Serious: Yes (Other)
  Sender: FDA-Public Use
  Company Number: CN-MYLANLABS-2019M1010593

PATIENT
  Age: 7 Month
  Sex: Male
  Weight: 8 kg

DRUGS (1)
  1. HEPARIN [Suspect]
     Active Substance: HEPARIN SODIUM
     Indication: ANTICOAGULANT THERAPY
     Dosage: 3 MILLIGRAM/KILOGRAM
     Route: 065

REACTIONS (3)
  - Cyanosis [Unknown]
  - Heparin-induced thrombocytopenia [Recovered/Resolved]
  - Skin lesion [Unknown]
